FAERS Safety Report 11611223 (Version 1)
Quarter: 2015Q4

REPORT INFORMATION
  Report Type: Spontaneous
  Country: US (occurrence: US)
  Receive Date: 20151008
  Receipt Date: 20151008
  Transmission Date: 20160304
  Serious: Yes (Other)
  Sender: FDA-Public Use
  Company Number: US-VIIV HEALTHCARE LIMITED-A1072907A

PATIENT
  Sex: Female

DRUGS (3)
  1. RYTHMOL [Suspect]
     Active Substance: PROPAFENONE HYDROCHLORIDE
  2. RYTHMOL SR [Suspect]
     Active Substance: PROPAFENONE HYDROCHLORIDE
     Indication: ATRIAL FIBRILLATION
     Dosage: UNKNOWN DOSING
     Route: 065
     Dates: start: 20100422
  3. EPIVIR HBV [Suspect]
     Active Substance: LAMIVUDINE
     Indication: HEPATITIS B
     Dosage: UNKNOWN DOSING
     Route: 065
     Dates: start: 20051128

REACTIONS (6)
  - Malaise [Unknown]
  - Sciatica [Unknown]
  - Memory impairment [Unknown]
  - Intervertebral disc protrusion [Unknown]
  - Neoplasm malignant [Unknown]
  - Treatment noncompliance [Unknown]
